FAERS Safety Report 13825024 (Version 2)
Quarter: 2017Q3

REPORT INFORMATION
  Report Type: Spontaneous
  Country: TR (occurrence: TR)
  Receive Date: 20170802
  Receipt Date: 20170822
  Transmission Date: 20171127
  Serious: Yes (Life-Threatening, Other)
  Sender: FDA-Public Use
  Company Number: TR-SA-2017SA138404

PATIENT
  Age: 35 Year
  Sex: Male
  Weight: 70 kg

DRUGS (1)
  1. FABRAZYME [Suspect]
     Active Substance: AGALSIDASE BETA
     Route: 041

REACTIONS (2)
  - Arteriovenous fistula thrombosis [Recovering/Resolving]
  - Tremor [Unknown]
